FAERS Safety Report 18238674 (Version 1)
Quarter: 2020Q3

REPORT INFORMATION
  Report Type: Spontaneous
  Country: CA (occurrence: CA)
  Receive Date: 20200907
  Receipt Date: 20200907
  Transmission Date: 20201103
  Serious: Yes (Hospitalization, Other)
  Sender: FDA-Public Use
  Company Number: NVSC2020CA243565

PATIENT
  Age: 34 Year
  Sex: Female

DRUGS (2)
  1. KCL [Suspect]
     Active Substance: POTASSIUM CHLORIDE
     Indication: ECTOPIC PREGNANCY
     Dosage: ROUTE: INTERGESTATIONAL
     Route: 065
  2. METHOTREXATE. [Suspect]
     Active Substance: METHOTREXATE
     Indication: ECTOPIC PREGNANCY
     Dosage: UNK
     Route: 065

REACTIONS (5)
  - Myelosuppression [Recovered/Resolved]
  - Pancytopenia [Unknown]
  - Drug interaction [Unknown]
  - Product use in unapproved indication [Unknown]
  - Pyrexia [Unknown]
